FAERS Safety Report 7735296-1 (Version None)
Quarter: 2011Q3

REPORT INFORMATION
  Report Type: 
  Country: None (occurrence: None)
  Receive Date: 20110907
  Receipt Date: 20110826
  Transmission Date: 20111222
  Serious: Yes (Other)
  Sender: FDA-Public Use
  Company Number: US-BAYER-200829300NA

PATIENT
  Age: 45 Year
  Sex: Male
  Weight: 88.345 kg

DRUGS (30)
  1. OPTIMARK [Suspect]
     Indication: PRODUCT USED FOR UNKNOWN INDICATION
  2. PREDNISONE [Concomitant]
  3. IMMUNOSUPPRESSIVE AGENTS [Concomitant]
  4. COREG [Concomitant]
  5. COUMADIN [Concomitant]
  6. HYDRALAZINE HCL [Concomitant]
  7. PROHANCE [Suspect]
     Indication: PRODUCT USED FOR UNKNOWN INDICATION
  8. HYDROCODONE [Concomitant]
  9. MULTI-VITAMIN [Concomitant]
  10. PLAVIX [Concomitant]
  11. COUMADIN [Concomitant]
  12. MAGNEVIST [Suspect]
     Indication: NUCLEAR MAGNETIC RESONANCE IMAGING
  13. EPOGEN [Concomitant]
     Dates: start: 19900101, end: 19990615
  14. IRON SUPPLEMENT [Concomitant]
  15. EFFEXOR [Concomitant]
  16. OMNISCAN [Suspect]
     Indication: PRODUCT USED FOR UNKNOWN INDICATION
  17. MULTIHANCE [Suspect]
     Indication: PRODUCT USED FOR UNKNOWN INDICATION
  18. RESTORIL [Concomitant]
  19. HEART MEDICATION (NOS) [Concomitant]
  20. PREDNISONE [Concomitant]
  21. NIFEDIPINE [Concomitant]
  22. MAGNEVIST [Suspect]
     Indication: ANGIOGRAM
     Dates: start: 20070205, end: 20070205
  23. PROCARDIA [Concomitant]
  24. DIGOXIN [Concomitant]
  25. GADOLINIUM IN UNSPECIFIED DRUG [Suspect]
     Indication: NUCLEAR MAGNETIC RESONANCE IMAGING
     Dosage: UNK UNK, ONCE
     Dates: start: 20021120, end: 20021120
  26. NEORAL [Concomitant]
  27. LIPITOR [Concomitant]
  28. AMIODARONE HCL [Concomitant]
  29. LASIX [Concomitant]
  30. LIPITOR [Concomitant]

REACTIONS (13)
  - PAIN [None]
  - RASH [None]
  - INJURY [None]
  - DISCOMFORT [None]
  - ANXIETY [None]
  - EMOTIONAL DISTRESS [None]
  - MOBILITY DECREASED [None]
  - PAIN IN EXTREMITY [None]
  - GENERAL PHYSICAL HEALTH DETERIORATION [None]
  - BACK PAIN [None]
  - MAJOR DEPRESSION [None]
  - NEPHROGENIC SYSTEMIC FIBROSIS [None]
  - OEDEMA PERIPHERAL [None]
